FAERS Safety Report 4622784-X (Version None)
Quarter: 2005Q1

REPORT INFORMATION
  Report Type: 
  Country: None (occurrence: None)
  Receive Date: 20050329
  Receipt Date: 20050329
  Transmission Date: 20050727
  Serious: Yes (Other)
  Sender: FDA-Public Use
  Company Number: None

PATIENT
  Sex: Female

DRUGS (2)
  1. KLONOPIN [Suspect]
     Indication: ANXIETY
     Dosage: 1MG BID TWO QHS   UNTIL 2020
  2. KLONOPIN [Suspect]
     Indication: PANIC DISORDER
     Dosage: 1MG BID TWO QHS   UNTIL 2020

REACTIONS (4)
  - AGITATION [None]
  - DRUG INEFFECTIVE [None]
  - FEELING JITTERY [None]
  - PANIC REACTION [None]
